FAERS Safety Report 24244088 (Version 1)
Quarter: 2024Q3

REPORT INFORMATION
  Report Type: Spontaneous
  Country: US (occurrence: None)
  Receive Date: 20240823
  Receipt Date: 20240823
  Transmission Date: 20241017
  Serious: No
  Sender: Public
  Company Number: None

PATIENT
  Age: 60 Year
  Sex: Male

DRUGS (1)
  1. GLYBURIDE [Suspect]
     Active Substance: GLYBURIDE

REACTIONS (6)
  - Hemiparesis [None]
  - Drooling [None]
  - Aphasia [None]
  - Muscular weakness [None]
  - Product prescribing issue [None]
  - Product prescribing issue [None]
